FAERS Safety Report 17423187 (Version 1)
Quarter: 2020Q1

REPORT INFORMATION
  Report Type: Spontaneous
  Country: DK (occurrence: DK)
  Receive Date: 20200216
  Receipt Date: 20200216
  Transmission Date: 20200409
  Serious: Yes (Other)
  Sender: FDA-Public Use
  Company Number: DK-TEVA-2020-DK-1186130

PATIENT
  Age: 44 Year
  Sex: Male

DRUGS (11)
  1. AMLODIPINE [Suspect]
     Active Substance: AMLODIPINE BESYLATE
     Indication: HYPERTENSION
     Dosage: STRENGTH: UNKNOWN; DOSAGE: UNKNOWN
     Route: 048
     Dates: start: 20100208
  2. SIMVASTATIN. [Concomitant]
     Active Substance: SIMVASTATIN
     Indication: HYPERCHOLESTEROLAEMIA
     Route: 048
     Dates: start: 2005, end: 2012
  3. HJERTEMAGNYL [Concomitant]
     Indication: ANTICOAGULANT THERAPY
     Dosage: 75 MG
     Route: 048
     Dates: start: 20140505
  4. CORODIL [ENALAPRIL] [Suspect]
     Active Substance: ENALAPRIL
     Indication: HYPERTENSION
     Dosage: STRENGTH: UNKNOWN; DOSAGE: UNKNOWN.
     Route: 048
  5. EZETIMIBE. [Concomitant]
     Active Substance: EZETIMIBE
     Indication: HYPERCHOLESTEROLAEMIA
     Dosage: 10 MG.
     Route: 048
     Dates: start: 20150819
  6. CENTYL MITE MED KALIUMKLORID [Concomitant]
     Indication: DIURETIC THERAPY
     Route: 048
     Dates: start: 20100301
  7. RAMIPRIL. [Suspect]
     Active Substance: RAMIPRIL
     Indication: HYPERTENSION
     Dosage: STRENGTH: UNKNOWN.; DOSAGE: UNKNOWN.
     Route: 048
     Dates: start: 20110216
  8. THYCAPZOL [Concomitant]
     Active Substance: METHIMAZOLE
     Indication: HYPERTHYROIDISM
     Dosage: 5 MG
     Route: 048
     Dates: start: 2016, end: 20190508
  9. PREDNISOLONE. [Concomitant]
     Active Substance: PREDNISOLONE
     Indication: POLYMYALGIA RHEUMATICA
  10. RANID [Suspect]
     Active Substance: RANITIDINE
     Indication: HYPERTENSION
     Dosage: STRENGTH: 5 + 25 MG; DOSAGE: UNKNOWN.
     Route: 048
     Dates: end: 20160526
  11. ATORVASTATIN [Concomitant]
     Active Substance: ATORVASTATIN
     Indication: HYPERCHOLESTEROLAEMIA
     Dosage: 10 MG.
     Route: 048
     Dates: start: 20150424

REACTIONS (5)
  - Protein urine present [Unknown]
  - Chronic kidney disease [Not Recovered/Not Resolved]
  - Myoglobin blood increased [Unknown]
  - Blood creatinine increased [Unknown]
  - Fatigue [Unknown]

NARRATIVE: CASE EVENT DATE: 2007
